FAERS Safety Report 8950795 (Version 3)
Quarter: 2013Q1

REPORT INFORMATION
  Report Type: Report from Study
  Country: IL (occurrence: IL)
  Receive Date: 20121207
  Receipt Date: 20130211
  Transmission Date: 20140127
  Serious: Yes (Hospitalization)
  Sender: FDA-Public Use
  Company Number: IL-009507513-1209ISR004488

PATIENT
  Age: 9 Year
  Sex: Male
  Weight: 26.5 kg

DRUGS (36)
  1. BLINDED APREPITANT [Suspect]
     Indication: PROPHYLAXIS OF NAUSEA AND VOMITING
     Dosage: UNK
     Route: 048
     Dates: start: 20120820, end: 20120822
  2. BLINDED APREPITANT [Suspect]
     Indication: PROPHYLAXIS OF NAUSEA AND VOMITING
     Dosage: UNK
     Route: 048
     Dates: start: 20120820, end: 20120822
  3. BLINDED DEXAMETHASONE [Suspect]
     Indication: PROPHYLAXIS OF NAUSEA AND VOMITING
     Dosage: UNK
     Route: 048
     Dates: start: 20120820, end: 20120822
  4. BLINDED DEXAMETHASONE [Suspect]
     Indication: PROPHYLAXIS OF NAUSEA AND VOMITING
     Dosage: UNK
     Route: 048
     Dates: start: 20120820, end: 20120822
  5. BLINDED ONDANSETRON [Suspect]
     Indication: PROPHYLAXIS OF NAUSEA AND VOMITING
     Dosage: UNK
     Route: 048
     Dates: start: 20120820, end: 20120822
  6. BLINDED ONDANSETRON HCL [Suspect]
     Indication: PROPHYLAXIS OF NAUSEA AND VOMITING
     Dosage: UNK
     Route: 048
     Dates: start: 20120820, end: 20120822
  7. BLINDED PLACEBO [Suspect]
     Indication: PROPHYLAXIS OF NAUSEA AND VOMITING
     Dosage: UNK
     Route: 048
     Dates: start: 20120820, end: 20120822
  8. BLINDED POST TRIAL THERAPY [Suspect]
     Indication: PROPHYLAXIS OF NAUSEA AND VOMITING
     Dosage: UNK
     Route: 048
     Dates: start: 20120820, end: 20120822
  9. BLINDED PRE TRIAL THERAPY [Suspect]
     Indication: PROPHYLAXIS OF NAUSEA AND VOMITING
     Dosage: UNK
     Route: 048
     Dates: start: 20120820, end: 20120822
  10. DEXAMETHASONE [Concomitant]
     Indication: PROPHYLAXIS OF NAUSEA AND VOMITING
     Dosage: 5 ML, QPM
     Route: 042
     Dates: start: 20120820, end: 20120820
  11. DEXAMETHASONE [Concomitant]
     Dosage: 5 ML, QAM
     Route: 042
     Dates: start: 20120821, end: 20120821
  12. DEXAMETHASONE [Concomitant]
     Dosage: 5 ML, QAM
     Route: 042
     Dates: start: 20120821, end: 20120821
  13. DEXAMETHASONE [Concomitant]
     Dosage: 5 ML, QPM
     Route: 042
     Dates: start: 20120821, end: 20120821
  14. DEXAMETHASONE [Concomitant]
     Dosage: 5 ML, QAM
     Route: 042
     Dates: start: 20120822, end: 20120822
  15. DEXAMETHASONE [Concomitant]
     Dosage: 5 ML, QAM
     Route: 042
     Dates: start: 20120822, end: 20120822
  16. DEXAMETHASONE [Concomitant]
     Dosage: 5 ML, QPM
     Route: 042
     Dates: start: 20120822, end: 20120822
  17. DEXAMETHASONE [Concomitant]
     Dosage: 5 ML, QAM
     Route: 042
     Dates: start: 20120823, end: 20120823
  18. DEXAMETHASONE [Concomitant]
     Dosage: 5 ML, QAM
     Route: 042
     Dates: start: 20120823, end: 20120823
  19. ONDANSETRON [Suspect]
     Indication: PROPHYLAXIS OF NAUSEA AND VOMITING
     Dosage: 5 MG, QPM
     Route: 042
     Dates: start: 20120820, end: 20120820
  20. ONDANSETRON [Suspect]
     Dosage: 5 MG, QAM
     Route: 042
     Dates: start: 20120821, end: 20120821
  21. ONDANSETRON [Suspect]
     Dosage: 5 MG, QAM
     Route: 042
     Dates: start: 20120821, end: 20120821
  22. ONDANSETRON [Suspect]
     Dosage: 5 MG, QPM
     Route: 042
     Dates: start: 20120821, end: 20120821
  23. ONDANSETRON [Suspect]
     Dosage: 5 MG, QAM
     Route: 042
     Dates: start: 20120822, end: 20120822
  24. ONDANSETRON [Suspect]
     Dosage: 5 MG, QAM
     Route: 042
     Dates: start: 20120822, end: 20120822
  25. ONDANSETRON [Suspect]
     Dosage: 5 MG, QPM
     Route: 042
     Dates: start: 20120822, end: 20120822
  26. ONDANSETRON [Suspect]
     Dosage: 5 MG, QAM
     Route: 042
     Dates: start: 20120823, end: 20120823
  27. ONDANSETRON [Suspect]
     Dosage: 5 MG, QAM
     Route: 042
     Dates: start: 20120823, end: 20120823
  28. ONDANSETRON [Suspect]
     Dosage: UNK UNK, QPM
     Route: 042
     Dates: start: 20120823, end: 20120823
  29. ONDANSETRON [Suspect]
     Dosage: 8 MG, QD
     Route: 042
     Dates: start: 20120826, end: 20120826
  30. DOXORUBICIN [Suspect]
     Indication: CHEMOTHERAPY
     Dosage: 37.5 MG, QD
     Route: 042
     Dates: start: 20120820, end: 20120821
  31. IFOSFAMIDE [Suspect]
     Indication: CHEMOTHERAPY
     Dosage: 3000 MG, QD
     Route: 042
     Dates: start: 20120820, end: 20120822
  32. SULFAMETHOXAZOLE (+) TRIMETHOPRIM [Concomitant]
     Indication: ANTIBIOTIC PROPHYLAXIS
     Dosage: 26 CC DAILY
     Route: 048
     Dates: start: 20120803, end: 20120915
  33. CARDIOXANE [Concomitant]
     Indication: PROPHYLAXIS
     Dosage: 375 MG, QD
     Route: 042
     Dates: start: 20120820, end: 20120821
  34. MESNA [Concomitant]
     Indication: PROPHYLAXIS
     Dosage: 600 MG, QID
     Route: 042
     Dates: start: 20120820, end: 20120823
  35. DEXTROSE (+) POTASSIUM CHLORIDE (+) SODIUM CHLORIDE [Concomitant]
     Indication: PROPHYLAXIS AGAINST DEHYDRATION
     Dosage: 125, CC/HR PRN
     Route: 042
     Dates: start: 20120820, end: 20120823
  36. HEPARIN SODIUM [Concomitant]
     Indication: FATIGUE
     Dosage: 500 UNIT, ONCE
     Route: 042
     Dates: start: 20120818, end: 20120818

REACTIONS (1)
  - Febrile neutropenia [Recovered/Resolved]
